FAERS Safety Report 7320468-0 (Version None)
Quarter: 2011Q1

REPORT INFORMATION
  Report Type: 
  Country: None (occurrence: None)
  Receive Date: 20110228
  Receipt Date: 20110221
  Transmission Date: 20110831
  Serious: Yes (Hospitalization)
  Sender: FDA-Public Use
  Company Number: B0701790A

PATIENT
  Sex: Female
  Weight: 42 kg

DRUGS (16)
  1. NEUTROGIN [Concomitant]
     Dates: start: 20070406, end: 20070416
  2. ACICLOVIR [Concomitant]
     Dosage: 100MG PER DAY
     Route: 048
     Dates: start: 20070330, end: 20070410
  3. UNKNOWN DRUG [Concomitant]
     Route: 042
     Dates: start: 20070401, end: 20070501
  4. ALKERAN [Suspect]
     Indication: STEM CELL TRANSPLANT
     Dosage: 128MGM2 PER DAY
     Route: 042
     Dates: start: 20070402, end: 20070403
  5. KYTRIL [Concomitant]
     Dosage: 2IUAX PER DAY
     Dates: start: 20070402, end: 20070403
  6. ALLOPURINOL [Concomitant]
     Dosage: 300MG PER DAY
     Route: 048
     Dates: start: 20070401, end: 20070404
  7. MECOBALAMIN [Concomitant]
     Dosage: 1500MG PER DAY
     Route: 048
     Dates: start: 20070330, end: 20070410
  8. DIAMOX [Concomitant]
     Dosage: 750MG PER DAY
     Route: 048
     Dates: start: 20070401, end: 20070404
  9. FLUCONAZOLE [Concomitant]
     Dosage: 100MG PER DAY
     Route: 048
     Dates: start: 20070425
  10. ENTOMOL [Concomitant]
     Dosage: 3G PER DAY
     Route: 048
     Dates: start: 20070425
  11. HEPARIN SODIUM [Concomitant]
     Dosage: 4ML PER DAY
     Dates: start: 20070401, end: 20070501
  12. CIPROFLOXACIN [Concomitant]
     Dosage: 600MG PER DAY
     Route: 048
     Dates: start: 20070402, end: 20070409
  13. ENTOMOL [Concomitant]
     Dosage: 3G PER DAY
     Route: 048
     Dates: start: 20070330, end: 20070410
  14. MUCOSTA [Concomitant]
     Dosage: 300MG PER DAY
     Route: 048
     Dates: start: 20070330, end: 20070410
  15. FLUCONAZOLE [Concomitant]
     Dosage: 100MG PER DAY
     Route: 048
     Dates: start: 20070330, end: 20070410
  16. MECOBALAMIN [Concomitant]
     Dosage: 1500MG PER DAY
     Route: 048
     Dates: start: 20070425

REACTIONS (6)
  - HAEMATEMESIS [None]
  - DIARRHOEA [None]
  - PYREXIA [None]
  - VOMITING [None]
  - MUCOUS MEMBRANE DISORDER [None]
  - OROPHARYNGEAL PAIN [None]
